FAERS Safety Report 14847312 (Version 30)
Quarter: 2022Q2

REPORT INFORMATION
  Report Type: Spontaneous
  Country: CA (occurrence: CA)
  Receive Date: 20180504
  Receipt Date: 20220519
  Transmission Date: 20220721
  Serious: Yes (Other)
  Sender: FDA-Public Use
  Company Number: CA-CELLTRION INC.-2018CA019591

PATIENT

DRUGS (52)
  1. INFLECTRA [Suspect]
     Active Substance: INFLIXIMAB-DYYB
     Indication: Crohn^s disease
     Dosage: 5 MG/KG, 0, 2, 6, THEN EVERY 8 WEEKS
     Route: 042
     Dates: start: 20180413
  2. INFLECTRA [Suspect]
     Active Substance: INFLIXIMAB-DYYB
     Dosage: 5 MG/KG, INDUCTION DOSES AT WEEK 0, 2 AND 6, THEN EVERY 8 WEEKS
     Route: 042
     Dates: start: 20180413, end: 20180913
  3. INFLECTRA [Suspect]
     Active Substance: INFLIXIMAB-DYYB
     Dosage: 5 MG/KG, 0, 2, 6, THEN EVERY 8 WEEKS
     Route: 042
     Dates: start: 20180426
  4. INFLECTRA [Suspect]
     Active Substance: INFLIXIMAB-DYYB
     Dosage: 5 MG/KG, 0, 2, 6, THEN EVERY 8 WEEKS
     Route: 042
     Dates: start: 20180525
  5. INFLECTRA [Suspect]
     Active Substance: INFLIXIMAB-DYYB
     Dosage: 5 MG/KG, 0, 2, 6, THEN EVERY 8 WEEKS
     Route: 042
     Dates: start: 20180719
  6. INFLECTRA [Suspect]
     Active Substance: INFLIXIMAB-DYYB
     Dosage: 5 MG/KG, 0, 2, 6, THEN EVERY 8 WEEKS
     Route: 042
     Dates: start: 20180913
  7. INFLECTRA [Suspect]
     Active Substance: INFLIXIMAB-DYYB
     Dosage: 6.13 MG/KG (500 MG), 0, 2, 6, THEN EVERY 8 WEEKS/EVERY 8 WEEKS
     Route: 042
     Dates: start: 20181108
  8. INFLECTRA [Suspect]
     Active Substance: INFLIXIMAB-DYYB
     Dosage: 500 MG EVERY 8 WEEKS
     Route: 042
     Dates: start: 20181108, end: 20190502
  9. INFLECTRA [Suspect]
     Active Substance: INFLIXIMAB-DYYB
     Dosage: 5 MG/KG, 0, 2, 6, THEN EVERY 8 WEEKS
     Route: 042
     Dates: start: 20190107
  10. INFLECTRA [Suspect]
     Active Substance: INFLIXIMAB-DYYB
     Dosage: 5 MG/KG, 0, 2, 6, THEN EVERY 8 WEEKS
     Route: 042
     Dates: start: 20190307
  11. INFLECTRA [Suspect]
     Active Substance: INFLIXIMAB-DYYB
     Dosage: 5 MG/KG, 0, 2, 6, THEN EVERY 8 WEEKS
     Route: 042
     Dates: start: 20190502
  12. INFLECTRA [Suspect]
     Active Substance: INFLIXIMAB-DYYB
     Dosage: 700 MG EVERY 8 WEEKS
     Route: 042
     Dates: start: 20190627, end: 20201104
  13. INFLECTRA [Suspect]
     Active Substance: INFLIXIMAB-DYYB
     Dosage: 700 MG EVERY 8 WEEKS
     Route: 042
     Dates: start: 20190822
  14. INFLECTRA [Suspect]
     Active Substance: INFLIXIMAB-DYYB
     Dosage: 700 MG EVERY 8 WEEKS
     Route: 042
     Dates: start: 20191031
  15. INFLECTRA [Suspect]
     Active Substance: INFLIXIMAB-DYYB
     Dosage: 700 MG EVERY 8 WEEKS
     Route: 042
     Dates: start: 20200114
  16. INFLECTRA [Suspect]
     Active Substance: INFLIXIMAB-DYYB
     Dosage: 700 MG EVERY 8 WEEKS
     Route: 042
     Dates: start: 20200114
  17. INFLECTRA [Suspect]
     Active Substance: INFLIXIMAB-DYYB
     Dosage: 700 MG EVERY 8 WEEKS
     Route: 042
     Dates: start: 20200310
  18. INFLECTRA [Suspect]
     Active Substance: INFLIXIMAB-DYYB
     Dosage: 700 MG EVERY 8 WEEKS
     Route: 042
     Dates: start: 20200505
  19. INFLECTRA [Suspect]
     Active Substance: INFLIXIMAB-DYYB
     Dosage: 700 MG EVERY 8 WEEKS
     Route: 042
     Dates: start: 20200629
  20. INFLECTRA [Suspect]
     Active Substance: INFLIXIMAB-DYYB
     Dosage: 700 MG EVERY 8 WEEKS
     Route: 042
     Dates: start: 20200825
  21. INFLECTRA [Suspect]
     Active Substance: INFLIXIMAB-DYYB
     Dosage: 700 MG EVERY 8 WEEKS
     Route: 042
     Dates: start: 20201104
  22. INFLECTRA [Suspect]
     Active Substance: INFLIXIMAB-DYYB
     Dosage: 900 MG EVERY 6 WEEKS
     Route: 042
     Dates: start: 20201214
  23. INFLECTRA [Suspect]
     Active Substance: INFLIXIMAB-DYYB
     Dosage: 900 MG EVERY 6 WEEKS
     Route: 042
     Dates: start: 20210310
  24. INFLECTRA [Suspect]
     Active Substance: INFLIXIMAB-DYYB
     Dosage: 900 MG, EVERY 6 WEEKS
     Route: 042
     Dates: start: 20210420
  25. INFLECTRA [Suspect]
     Active Substance: INFLIXIMAB-DYYB
     Dosage: 900 MG, EVERY 6 WEEKS
     Route: 042
     Dates: start: 20210603
  26. INFLECTRA [Suspect]
     Active Substance: INFLIXIMAB-DYYB
     Dosage: 900 MG, EVERY 6 WEEKS
     Route: 042
     Dates: start: 20210715
  27. INFLECTRA [Suspect]
     Active Substance: INFLIXIMAB-DYYB
     Dosage: 900 MG, EVERY 6 WEEKS
     Route: 042
     Dates: start: 20210824
  28. INFLECTRA [Suspect]
     Active Substance: INFLIXIMAB-DYYB
     Dosage: 900 MG, EVERY 6 WEEKS
     Route: 042
     Dates: start: 20211005
  29. INFLECTRA [Suspect]
     Active Substance: INFLIXIMAB-DYYB
     Dosage: 900 MG, EVERY 6 WEEKS
     Route: 042
     Dates: start: 20211117
  30. INFLECTRA [Suspect]
     Active Substance: INFLIXIMAB-DYYB
     Dosage: 900 MG, EVERY 6 WEEKS
     Route: 042
     Dates: start: 20220208
  31. INFLECTRA [Suspect]
     Active Substance: INFLIXIMAB-DYYB
     Dosage: 900 MG, EVERY 6 WEEKS
     Route: 042
     Dates: start: 20220323
  32. INFLECTRA [Suspect]
     Active Substance: INFLIXIMAB-DYYB
     Dosage: 900 MG, EVERY 6 WEEKS
     Route: 042
     Dates: start: 20220504
  33. BUPROPION [Concomitant]
     Active Substance: BUPROPION
     Dosage: 300 MG, 1X/DAY
     Route: 065
  34. CIPROFLOXACIN [Concomitant]
     Active Substance: CIPROFLOXACIN
     Indication: Cellulitis
     Dosage: 500 MG, 2X/DAY EVERY 12 H
     Route: 048
     Dates: end: 20180323
  35. CIPROFLOXACIN [Concomitant]
     Active Substance: CIPROFLOXACIN
     Dosage: UNK
  36. AZATHIOPRINE [Concomitant]
     Active Substance: AZATHIOPRINE
     Dosage: 50 MG X 4
     Dates: start: 20180404
  37. BIO K PLUS [Concomitant]
     Dosage: 1/4 OF BOTTLE 1X/DAY AS NEEDED
     Route: 065
  38. COLESTID [Concomitant]
     Active Substance: COLESTIPOL HYDROCHLORIDE
     Dosage: 2 G, 2X/DAY
     Route: 065
  39. CORTISONE [Concomitant]
     Active Substance: CORTISONE
     Dosage: UNK
  40. METRONIDAZOLE [Concomitant]
     Active Substance: METRONIDAZOLE
     Indication: Cellulitis
     Dosage: 500 MG, 3X/DAY EVERY 8 HOURS
     Route: 048
     Dates: end: 20180323
  41. METRONIDAZOLE [Concomitant]
     Active Substance: METRONIDAZOLE
     Dosage: UNK
  42. MINT RISPERIDON [Concomitant]
     Dosage: 0.5 MG, 1X/DAY AT BEDTIME(1DF)
     Route: 065
  43. PMS CELECOXIB [Concomitant]
     Dosage: 100 MG, 2X/DAY
     Route: 065
  44. PMS CLONAZEPAM [Concomitant]
     Dosage: 1/2 TO 1-1 MG TAB 1X/DAY AS NEEDED
     Route: 065
  45. HYDROMORPHONE HYDROCHLORIDE [Concomitant]
     Active Substance: HYDROMORPHONE HYDROCHLORIDE
     Indication: Pain
     Dosage: 1 MG, AS NEEDED EVERY 3 H
     Route: 065
  46. LOPERAMIDE HYDROCHLORIDE [Concomitant]
     Active Substance: LOPERAMIDE HYDROCHLORIDE
     Indication: Diarrhoea
     Dosage: 2 MG, 2X/DAY AS NEEDED
     Route: 065
  47. PMS ZOPICLONE [Concomitant]
     Indication: Insomnia
     Dosage: 1/2 TO 1-7.5 MG TABLET DAILY
     Route: 065
  48. ROGAINE [Concomitant]
     Active Substance: MINOXIDIL
     Dosage: 5% APPLY 1 ML SOLUTION ON SCALP
     Route: 065
  49. VENLAFAXINE HYDROCHLORIDE [Concomitant]
     Active Substance: VENLAFAXINE HYDROCHLORIDE
     Dosage: 75 MG, 1X/DAY
     Route: 065
  50. VIAGRA [Concomitant]
     Active Substance: SILDENAFIL CITRATE
     Dosage: 100 MG, 1/2 TO 1 TABLET OF 100MG BEFORE SEXUAL ACTIVITY
     Route: 065
  51. VITAMIN B12 [Concomitant]
     Active Substance: CYANOCOBALAMIN
     Dosage: 250 MG, 1X/DAY
     Route: 048
  52. VITAMIN B12 [Concomitant]
     Active Substance: CYANOCOBALAMIN
     Dosage: 250 MG, 1X/DAY
     Route: 065

REACTIONS (19)
  - Vein rupture [Unknown]
  - Staphylococcal skin infection [Recovering/Resolving]
  - Post procedural infection [Recovering/Resolving]
  - Off label use [Unknown]
  - Off label use [Unknown]
  - Off label use [Unknown]
  - Intentional product use issue [Unknown]
  - Inappropriate schedule of product administration [Unknown]
  - Hypertension [Not Recovered/Not Resolved]
  - Migraine [Unknown]
  - Herpes zoster [Recovering/Resolving]
  - Poor venous access [Not Recovered/Not Resolved]
  - Alopecia [Unknown]
  - Toothache [Unknown]
  - Infusion site swelling [Unknown]
  - Infusion site bruising [Unknown]
  - Pain [Unknown]
  - Body temperature decreased [Unknown]
  - Condition aggravated [Recovered/Resolved]

NARRATIVE: CASE EVENT DATE: 20180101
